FAERS Safety Report 9340659 (Version 1)
Quarter: 2013Q2

REPORT INFORMATION
  Report Type: Spontaneous
  Country: US (occurrence: US)
  Receive Date: 20130610
  Receipt Date: 20130610
  Transmission Date: 20140414
  Serious: Yes (Hospitalization)
  Sender: FDA-Public Use
  Company Number: US-GLAXOSMITHKLINE-A1025717A

PATIENT
  Age: 51 Year
  Sex: Female

DRUGS (4)
  1. TYKERB [Suspect]
     Indication: BREAST CANCER
     Dosage: 1000MG PER DAY
     Route: 048
     Dates: start: 20130225
  2. TEMAZEPAM [Concomitant]
  3. VICODIN [Concomitant]
  4. DEXAMETHASONE [Concomitant]

REACTIONS (2)
  - Vomiting [Unknown]
  - Diarrhoea [Unknown]
